FAERS Safety Report 6255538-1 (Version None)
Quarter: 2009Q3

REPORT INFORMATION
  Report Type: 
  Country: None (occurrence: None)
  Receive Date: 20090702
  Receipt Date: 20090622
  Transmission Date: 20100115
  Serious: Yes (Hospitalization, Other)
  Sender: FDA-Public Use
  Company Number: US-BAXTER-2009BH010629

PATIENT
  Sex: Male

DRUGS (1)
  1. POTASSIUM CHLORIDE/DEXTROSE/SODIUM CHLORIDE [Suspect]
     Indication: DRUG USE FOR UNKNOWN INDICATION
     Route: 042
     Dates: start: 20090407

REACTIONS (2)
  - INJECTION SITE EXTRAVASATION [None]
  - OEDEMA [None]
